FAERS Safety Report 19751482 (Version 1)
Quarter: 2021Q3

REPORT INFORMATION
  Report Type: Spontaneous
  Country: US (occurrence: US)
  Receive Date: 20210827
  Receipt Date: 20210827
  Transmission Date: 20211014
  Serious: No
  Sender: FDA-Public Use
  Company Number: US-APOTEX-2021AP020462

PATIENT
  Sex: Female

DRUGS (3)
  1. AZELASTINE HCL NASAL SOLUTION [Suspect]
     Active Substance: AZELASTINE HYDROCHLORIDE
     Dosage: STATED SHE USES HER OWN JUDGEMENT OR WHEN NEEDED SOMETIMES ITS 1 SPRAY OTHER TIMES SHE USES 2 SPRAYS
     Route: 065
  2. CLARITIN [Suspect]
     Active Substance: LORATADINE
     Indication: PRODUCT USED FOR UNKNOWN INDICATION
     Dosage: UNK
     Route: 065
  3. AZELASTINE HCL NASAL SOLUTION [Suspect]
     Active Substance: AZELASTINE HYDROCHLORIDE
     Indication: PRODUCT USED FOR UNKNOWN INDICATION
     Dosage: UNK, BID (1 SPRAY IN EACH NOSTRIL)
     Route: 065

REACTIONS (7)
  - Nasal congestion [Unknown]
  - Eye pruritus [Unknown]
  - Rhinorrhoea [Unknown]
  - Sneezing [Unknown]
  - Product substitution issue [Unknown]
  - Drug ineffective [Unknown]
  - Inappropriate schedule of product administration [Unknown]
